FAERS Safety Report 7989717-X (Version None)
Quarter: 2011Q4

REPORT INFORMATION
  Report Type: 
  Country: None (occurrence: None)
  Receive Date: 20111215
  Receipt Date: 20111202
  Transmission Date: 20120403
  Serious: Yes (Hospitalization)
  Sender: FDA-Public Use
  Company Number: AUR-APL-2011-06120

PATIENT
  Age: 50 Year
  Sex: Female
  Weight: 83.45 kg

DRUGS (10)
  1. VICODIN [Concomitant]
  2. HYDROCHLOROTHIAZIDE [Concomitant]
  3. LISINOPRIL [Suspect]
     Indication: HYPERTENSION
     Dosage: 40 MG, 1 D, ORAL
     Route: 048
     Dates: start: 19970225
  4. BEVACIZUMAB (BEVACIZUMAB) [Suspect]
     Indication: COLON CANCER
     Dosage: 2.8571 MG/M2 (40 MG/M2, 1 IN 14 D), INTRAVENOUS
     Route: 042
     Dates: start: 20070815
  5. CLONIDINE [Suspect]
     Indication: HYPERTENSION
     Dosage: 0.4 MG (0.2 MG, 2 IN 1 D), ORAL
     Route: 048
     Dates: start: 20070809
  6. ATENOLOL [Suspect]
     Indication: HYPERTENSION
     Dosage: 50 MG, 1 D, ORAL
     Route: 048
     Dates: start: 20070808
  7. OXALIPLATIN [Suspect]
     Indication: COLON CANCER
     Dosage: 2.8571 MG/M2 (40 MG/M2 1 IN 14 D, INTRAVENOUS
     Route: 042
     Dates: start: 20070815, end: 20080425
  8. CENTRUM (CENTRUM /00554501/ [Concomitant]
  9. LEUCOVORIN CALCIUM [Suspect]
     Indication: COLON CANCER
     Dosage: 28.5714 MG/M2 (400 MG/M2 1 IN 14 D), INTRAVENOUS
     Route: 042
     Dates: start: 20070815
  10. FLUOROURACIL [Suspect]
     Indication: COLON CANCER
     Dosage: 19.2857 MG/M2 (270 MG/M2M 1 IN 14 D), INTRAVENOUS
     Route: 042
     Dates: start: 20070815

REACTIONS (12)
  - BACTERIAL TEST POSITIVE [None]
  - DEHYDRATION [None]
  - LUMBAR RADICULOPATHY [None]
  - PYREXIA [None]
  - ONYCHOMYCOSIS [None]
  - NEUROPATHY PERIPHERAL [None]
  - HYPOTENSION [None]
  - URINE LEUKOCYTE ESTERASE POSITIVE [None]
  - CHRONIC OBSTRUCTIVE PULMONARY DISEASE [None]
  - BLOOD URINE [None]
  - COLON CANCER METASTATIC [None]
  - OBESITY [None]
